FAERS Safety Report 21092660 (Version 1)
Quarter: 2022Q3

REPORT INFORMATION
  Report Type: Spontaneous
  Country: US (occurrence: US)
  Receive Date: 20220718
  Receipt Date: 20220718
  Transmission Date: 20221027
  Serious: Yes (Other)
  Sender: FDA-Public Use
  Company Number: US-drreddys-SPO/USA/22/0152184

PATIENT
  Age: 20 Year
  Sex: Female

DRUGS (1)
  1. ACCUTANE [Suspect]
     Active Substance: ISOTRETINOIN
     Indication: Acne
     Dosage: RMA ISSUE DATE: 23 NOVEMBER 2021 12:00:00 AM, 03 JUNE 2022 08:46:37 AM, 05 JULY 2022 06:29:23 PM

REACTIONS (1)
  - Adjustment disorder with depressed mood [Unknown]
